FAERS Safety Report 25401247 (Version 2)
Quarter: 2025Q3

REPORT INFORMATION
  Report Type: Spontaneous
  Country: US (occurrence: US)
  Receive Date: 20250605
  Receipt Date: 20250724
  Transmission Date: 20251020
  Serious: Yes (Hospitalization)
  Sender: AMGEN
  Company Number: US-AMGEN-USASP2025108005

PATIENT
  Age: 36 Year
  Sex: Female

DRUGS (9)
  1. PREDNISONE [Suspect]
     Active Substance: PREDNISONE
     Indication: Large granular lymphocytosis
     Route: 065
  2. FILGRASTIM [Suspect]
     Active Substance: FILGRASTIM
     Indication: Product used for unknown indication
     Route: 065
  3. CYCLOSPORINE [Concomitant]
     Active Substance: CYCLOSPORINE
  4. METHOTREXATE [Concomitant]
     Active Substance: METHOTREXATE
     Route: 048
  5. CYCLOPHOSPHAMIDE [Concomitant]
     Active Substance: CYCLOPHOSPHAMIDE
  6. PENTOSTATIN [Concomitant]
     Active Substance: PENTOSTATIN
  7. Immunoglobulin [Concomitant]
     Route: 040
  8. TACROLIMUS [Concomitant]
     Active Substance: TACROLIMUS
  9. DANAZOL [Concomitant]
     Active Substance: DANAZOL

REACTIONS (2)
  - Autoimmune enteropathy [Recovering/Resolving]
  - Chronic sinusitis [Unknown]
